FAERS Safety Report 8096284-1 (Version None)
Quarter: 2012Q1

REPORT INFORMATION
  Report Type: 
  Country: None (occurrence: None)
  Receive Date: 20120129
  Receipt Date: 20111222
  Transmission Date: 20120608
  Serious: No
  Sender: FDA-Public Use
  Company Number: US-ABBOTT-11P-163-0885995-00

PATIENT
  Age: 47 Year
  Sex: Female

DRUGS (5)
  1. 1 YELLOW CAP [Concomitant]
     Indication: NERVOUS SYSTEM DISORDER
  2. BENICAR [Concomitant]
     Indication: BLOOD PRESSURE
  3. ONDANSETRON HCL [Concomitant]
     Indication: NAUSEA
  4. HUMIRA [Suspect]
     Indication: CROHN'S DISEASE
     Dates: start: 20111024
  5. LOMOTIL [Concomitant]
     Indication: DIARRHOEA

REACTIONS (1)
  - INJECTION SITE HAEMORRHAGE [None]
